FAERS Safety Report 7877690-4 (Version None)
Quarter: 2011Q4

REPORT INFORMATION
  Report Type: 
  Country: None (occurrence: None)
  Receive Date: 20111031
  Receipt Date: 20111031
  Transmission Date: 20120403
  Serious: No
  Sender: FDA-Public Use
  Company Number: None

PATIENT
  Sex: Female

DRUGS (1)
  1. LUPRON DEPOT [Suspect]
     Indication: ENDOMETRIOSIS
     Dosage: 3.75MG
     Route: 030
     Dates: start: 20110801, end: 20110930

REACTIONS (11)
  - MUSCLE SPASMS [None]
  - IRRITABILITY [None]
  - VISION BLURRED [None]
  - NAUSEA [None]
  - INJECTION SITE PAIN [None]
  - ASTHMA [None]
  - DIZZINESS [None]
  - WEIGHT INCREASED [None]
  - HOT FLUSH [None]
  - TACHYCARDIA [None]
  - ABDOMINAL DISTENSION [None]
